FAERS Safety Report 4923474-6 (Version None)
Quarter: 2006Q1

REPORT INFORMATION
  Report Type: 
  Country: None (occurrence: None)
  Receive Date: 20060227
  Receipt Date: 20050216
  Transmission Date: 20060701
  Serious: No
  Sender: FDA-Public Use
  Company Number: US-BRISTOL-MYERS SQUIBB COMPANY-12866356

PATIENT
  Age: 10 Year

DRUGS (1)
  1. LYSODREN [Suspect]
     Indication: ADRENAL CARCINOMA

REACTIONS (1)
  - HYPONATRAEMIA [None]
